FAERS Safety Report 6454025-5 (Version None)
Quarter: 2009Q4

REPORT INFORMATION
  Report Type: 
  Country: None (occurrence: None)
  Receive Date: 20091124
  Receipt Date: 20091116
  Transmission Date: 20100525
  Serious: Yes (Death)
  Sender: FDA-Public Use
  Company Number: A0814211A

PATIENT
  Age: 82 Year
  Sex: Male

DRUGS (2)
  1. PROMACTA [Suspect]
     Indication: IDIOPATHIC THROMBOCYTOPENIC PURPURA
     Dosage: 25MG PER DAY
     Route: 048
     Dates: start: 20090717, end: 20091008
  2. NO CONCURRENT MEDICATION [Concomitant]

REACTIONS (2)
  - DEATH [None]
  - HAEMORRHAGE [None]
